FAERS Safety Report 10048754 (Version 2)
Quarter: 2014Q2

REPORT INFORMATION
  Report Type: Spontaneous
  Country: US (occurrence: US)
  Receive Date: 20140331
  Receipt Date: 20140410
  Transmission Date: 20141212
  Serious: No
  Sender: FDA-Public Use
  Company Number: US-BAYER-2014-039552

PATIENT
  Age: 71 Year
  Sex: Female
  Weight: 57 kg

DRUGS (3)
  1. BAYER ASPIRIN REGIMEN ADULT LOW STRENGTH [Suspect]
     Indication: ANALGESIC THERAPY
     Dosage: 1 DF, QD WITH FOOD
     Route: 048
  2. ALEVE CAPLET [Suspect]
     Indication: ANALGESIC THERAPY
     Dosage: 1 DF, PRN
     Route: 048
     Dates: start: 201401
  3. METHIMAZOLE [Concomitant]

REACTIONS (4)
  - Nausea [Recovered/Resolved]
  - Drug ineffective [None]
  - Therapeutic response changed [Recovered/Resolved]
  - Intentional product misuse [None]
